FAERS Safety Report 7374717-3 (Version None)
Quarter: 2011Q1

REPORT INFORMATION
  Report Type: 
  Country: None (occurrence: None)
  Receive Date: 20110325
  Receipt Date: 20101202
  Transmission Date: 20110831
  Serious: No
  Sender: FDA-Public Use
  Company Number: US-MYLANLABS-2010S1016019

PATIENT
  Age: 54 Year
  Sex: Female
  Weight: 54.43 kg

DRUGS (9)
  1. PROPRANOLOL [Concomitant]
  2. NEXIUM [Concomitant]
  3. DESIPRAMIDE HCL [Concomitant]
  4. FENTANYL-100 [Suspect]
     Indication: PAIN
     Dosage: Q72H
     Route: 062
     Dates: start: 20080101
  5. CYMBALTA [Concomitant]
  6. HYDROXIZINE [Concomitant]
  7. ESTROGEN NOS [Concomitant]
  8. VENTOLIN [Concomitant]
  9. ZOFRAN [Concomitant]

REACTIONS (4)
  - FALSE NEGATIVE INVESTIGATION RESULT [None]
  - FALSE POSITIVE INVESTIGATION RESULT [None]
  - DRUG INEFFECTIVE [None]
  - MALABSORPTION [None]
